FAERS Safety Report 20906650 (Version 1)
Quarter: 2022Q2

REPORT INFORMATION
  Report Type: Spontaneous
  Country: US (occurrence: US)
  Receive Date: 20220602
  Receipt Date: 20220602
  Transmission Date: 20220721
  Serious: Yes (Hospitalization, Other)
  Sender: FDA-Public Use
  Company Number: US-VELOXIS PHARMACEUTICALS-2022VELUS-000352

PATIENT
  Age: 64 Year
  Sex: Male

DRUGS (2)
  1. TACROLIMUS [Suspect]
     Active Substance: TACROLIMUS
     Indication: Prophylaxis against graft versus host disease
     Dosage: UNK
  2. METHOTREXATE [Suspect]
     Active Substance: METHOTREXATE
     Indication: Prophylaxis against graft versus host disease
     Dosage: UNK

REACTIONS (8)
  - Glomerulonephritis minimal lesion [Recovered/Resolved]
  - Cold type haemolytic anaemia [Recovered/Resolved]
  - Chronic kidney disease [Recovered/Resolved]
  - Chronic graft versus host disease in lung [Recovered/Resolved]
  - Aphasia [Recovered/Resolved]
  - Acute respiratory failure [Recovered/Resolved]
  - Mental status changes [Recovered/Resolved]
  - Off label use [Unknown]
